FAERS Safety Report 7502190-0 (Version None)
Quarter: 2011Q1

REPORT INFORMATION
  Report Type: 
  Country: None (occurrence: None)
  Receive Date: 20110318
  Receipt Date: 20101004
  Transmission Date: 20110831
  Serious: Yes (Other)
  Sender: FDA-Public Use
  Company Number: 2010SP053059

PATIENT
  Age: 67 Year
  Sex: Male

DRUGS (7)
  1. ASPIRIN [Concomitant]
  2. LISINOPRIL [Concomitant]
  3. LEVOXYL [Concomitant]
  4. SOLATOL [Concomitant]
  5. LASIX [Concomitant]
  6. PEG-INTRON [Suspect]
     Indication: HEPATIC CIRRHOSIS
     Dosage: 150 MCG;QW;SC
     Route: 058
     Dates: start: 20100701
  7. PEG-INTRON [Suspect]
     Indication: HEPATITIS C
     Dosage: 150 MCG;QW;SC
     Route: 058
     Dates: start: 20100701

REACTIONS (2)
  - INFLUENZA LIKE ILLNESS [None]
  - MYOCARDIAL INFARCTION [None]
